FAERS Safety Report 5996779-8 (Version None)
Quarter: 2008Q4

REPORT INFORMATION
  Report Type: 
  Country: None (occurrence: None)
  Receive Date: 20081212
  Receipt Date: 20081024
  Transmission Date: 20090506
  Serious: No
  Sender: FDA-Public Use
  Company Number: US-ABBOTT-08P-163-0483721-00

PATIENT
  Sex: Female
  Weight: 54.934 kg

DRUGS (8)
  1. HUMIRA [Suspect]
     Indication: CROHN'S DISEASE
     Route: 058
     Dates: start: 20080401
  2. ENDOCORT [Concomitant]
     Indication: CROHN'S DISEASE
  3. CARVEDILOL [Concomitant]
     Indication: HEART VALVE INCOMPETENCE
  4. CARVEDILOL [Concomitant]
     Indication: HYPERTENSION
  5. RAMIPRIL [Concomitant]
     Indication: HEART VALVE INCOMPETENCE
  6. RAMIPRIL [Concomitant]
     Indication: HYPERTENSION
  7. SULFADIMIDINE [Concomitant]
     Indication: DRUG USE FOR UNKNOWN INDICATION
  8. DIPHENHYDRAMINE HYDROCHLORIDE [Concomitant]
     Indication: DRUG USE FOR UNKNOWN INDICATION

REACTIONS (2)
  - INCORRECT DOSE ADMINISTERED [None]
  - INJECTION SITE PAIN [None]
